FAERS Safety Report 4973484-8 (Version None)
Quarter: 2006Q2

REPORT INFORMATION
  Report Type: 
  Country: None (occurrence: None)
  Receive Date: 20060407
  Receipt Date: 20060331
  Transmission Date: 20061013
  Serious: Yes (Hospitalization, Other)
  Sender: FDA-Public Use
  Company Number: 2005143319

PATIENT
  Age: 53 Year
  Sex: Female

DRUGS (4)
  1. NORVASC [Suspect]
     Indication: HYPERTENSION
     Dosage: 5 MG (5 MG, DAILY), ORAL
     Route: 048
  2. KEPPRA [Concomitant]
  3. ZONEGRAN [Concomitant]
  4. HYDROCHLOROTHIAZIDE [Concomitant]

REACTIONS (5)
  - CONVULSION [None]
  - INTRACRANIAL ANEURYSM [None]
  - POST PROCEDURAL COMPLICATION [None]
  - SCAR [None]
  - THERAPEUTIC RESPONSE DECREASED [None]
